FAERS Safety Report 7048861-4 (Version None)
Quarter: 2010Q4

REPORT INFORMATION
  Report Type: 
  Country: None (occurrence: None)
  Receive Date: 20101012
  Receipt Date: 20101004
  Transmission Date: 20110411
  Serious: Yes (Other)
  Sender: FDA-Public Use
  Company Number: 2010MA003234

PATIENT
  Sex: Female

DRUGS (1)
  1. METOCLOPRAMIDE [Suspect]
     Dosage: PO
     Route: 048
     Dates: start: 20041101, end: 20090401

REACTIONS (5)
  - ECONOMIC PROBLEM [None]
  - EMOTIONAL DISTRESS [None]
  - EXTRAPYRAMIDAL DISORDER [None]
  - TARDIVE DYSKINESIA [None]
  - TREMOR [None]
